FAERS Safety Report 25670436 (Version 1)
Quarter: 2025Q3

REPORT INFORMATION
  Report Type: Spontaneous
  Country: JP (occurrence: JP)
  Receive Date: 20250812
  Receipt Date: 20250812
  Transmission Date: 20251021
  Serious: Yes (Other)
  Sender: OTSUKA
  Company Number: JP-MMM-Otsuka-FW0GHTJZ

PATIENT
  Age: 8 Decade
  Sex: Male

DRUGS (5)
  1. REXULTI [Suspect]
     Active Substance: BREXPIPRAZOLE
     Indication: Dementia Alzheimer^s type
     Dosage: 2 MG/DAY
     Route: 065
  2. REXULTI [Suspect]
     Active Substance: BREXPIPRAZOLE
     Indication: Neuropsychological symptoms
  3. REXULTI [Suspect]
     Active Substance: BREXPIPRAZOLE
     Indication: Anxiety
  4. REXULTI [Suspect]
     Active Substance: BREXPIPRAZOLE
     Indication: Irritability
  5. REXULTI [Suspect]
     Active Substance: BREXPIPRAZOLE
     Indication: Irritability

REACTIONS (2)
  - Akinesia [Unknown]
  - Sedation [Unknown]
